FAERS Safety Report 8613786 (Version 3)
Quarter: 2012Q4

REPORT INFORMATION
  Report Type: 
  Country: US (occurrence: US)
  Receive Date: 20120614
  Receipt Date: 20121102
  Transmission Date: 20130627
  Serious: Yes (Hospitalization, Other)
  Sender: FDA-Public Use
  Company Number: US-PFIZER INC-2012139868

PATIENT
  Age: 61 Year
  Sex: Female
  Weight: 132 kg

DRUGS (5)
  1. LYRICA [Suspect]
     Indication: NERVE PAIN
     Dosage: UNK
     Route: 048
  2. ZYVOX [Suspect]
     Indication: ABSCESS
     Dosage: UNK
     Dates: start: 201209, end: 2012
  3. ZYVOX [Suspect]
     Indication: INFECTION
  4. LISINOPRIL [Concomitant]
     Dosage: UNK
  5. METOPROLOL [Concomitant]
     Dosage: UNK

REACTIONS (9)
  - Abdominal mass [Unknown]
  - Infection [Unknown]
  - Subcutaneous abscess [Unknown]
  - Dehydration [Unknown]
  - Fluid retention [Unknown]
  - Red blood cell count decreased [Unknown]
  - Drug ineffective [Unknown]
  - Neuralgia [Unknown]
  - Pain [Unknown]
